FAERS Safety Report 7372979-X (Version None)
Quarter: 2011Q1

REPORT INFORMATION
  Report Type: 
  Country: None (occurrence: None)
  Receive Date: 20110324
  Receipt Date: 20110318
  Transmission Date: 20110831
  Serious: Yes (Other)
  Sender: FDA-Public Use
  Company Number: FR-PFIZER INC-2011060897

PATIENT
  Age: 87 Year
  Sex: Male

DRUGS (1)
  1. TAHOR [Suspect]
     Dosage: UNK
     Dates: end: 20110318

REACTIONS (1)
  - PALATAL OEDEMA [None]
